FAERS Safety Report 13106491 (Version 1)
Quarter: 2017Q1

REPORT INFORMATION
  Report Type: Spontaneous
  Country: US (occurrence: US)
  Receive Date: 20170111
  Receipt Date: 20170111
  Transmission Date: 20170428
  Serious: No
  Sender: FDA-Public Use
  Company Number: US-TEVA-728539ACC

PATIENT
  Age: 55 Year
  Sex: Male

DRUGS (17)
  1. GALANTAMINE ER [Concomitant]
     Active Substance: GALANTAMINE
  2. MULTIVITAMIN [Concomitant]
     Active Substance: VITAMINS
  3. VITAMIN D [Concomitant]
     Active Substance: CHOLECALCIFEROL
  4. PROVIGIL [Concomitant]
     Active Substance: MODAFINIL
  5. METHYLPR SS [Concomitant]
  6. LEVOTHYROXIN [Concomitant]
     Active Substance: LEVOTHYROXINE
  7. LECITHIN [Concomitant]
     Active Substance: LECITHIN
  8. FISH OIL [Concomitant]
     Active Substance: FISH OIL
  9. SIMVASTATIN. [Concomitant]
     Active Substance: SIMVASTATIN
  10. ZOLOFT [Concomitant]
     Active Substance: SERTRALINE HYDROCHLORIDE
  11. VITAMIN B12 [Concomitant]
     Active Substance: CYANOCOBALAMIN
  12. ASPIRIN. [Concomitant]
     Active Substance: ASPIRIN
  13. DOXYCYCLINE. [Concomitant]
     Active Substance: DOXYCYCLINE
  14. CALCIUM GLUCONATE. [Concomitant]
     Active Substance: CALCIUM GLUCONATE
  15. COPAXONE [Suspect]
     Active Substance: GLATIRAMER ACETATE
     Indication: MULTIPLE SCLEROSIS
     Route: 058
     Dates: start: 20060516
  16. SPIRULINA [Concomitant]
     Active Substance: SPIRULINA
  17. FINASTERIDE. [Concomitant]
     Active Substance: FINASTERIDE

REACTIONS (2)
  - Dyspnoea [Unknown]
  - Nausea [Unknown]

NARRATIVE: CASE EVENT DATE: 201611
